APPROVED DRUG PRODUCT: TEXACORT
Active Ingredient: HYDROCORTISONE
Strength: 2.5%
Dosage Form/Route: SOLUTION;TOPICAL
Application: A081271 | Product #001
Applicant: MISSION PHARMACAL CO
Approved: Apr 17, 1992 | RLD: No | RS: Yes | Type: RX